FAERS Safety Report 7513454-9 (Version None)
Quarter: 2011Q2

REPORT INFORMATION
  Report Type: 
  Country: None (occurrence: None)
  Receive Date: 20110531
  Receipt Date: 20110517
  Transmission Date: 20111010
  Serious: Yes (Other)
  Sender: FDA-Public Use
  Company Number: DE-MYLANLABS-2011S1010131

PATIENT
  Sex: Female
  Weight: 59 kg

DRUGS (2)
  1. FENOFIBRATE [Suspect]
     Indication: HYPERLIPIDAEMIA
     Dosage: DAILY DOSE: 250 MG MILLIGRAM(S) EVERY DAY
     Route: 048
     Dates: start: 20110322, end: 20110502
  2. FENOFIBRATE [Suspect]
     Dosage: DAILY DOSE: 250 MG MILLIGRAM(S) EVERY DAY
     Route: 048
     Dates: start: 20110510

REACTIONS (2)
  - ARTHRALGIA [None]
  - MENTAL STATUS CHANGES [None]
